FAERS Safety Report 9459413 (Version 2)
Quarter: 2013Q4

REPORT INFORMATION
  Report Type: Spontaneous
  Country: JP (occurrence: JP)
  Receive Date: 20130815
  Receipt Date: 20131229
  Transmission Date: 20140711
  Serious: Yes (Death)
  Sender: FDA-Public Use
  Company Number: JP-ROCHE-1261173

PATIENT
  Age: 80 Year
  Sex: Female
  Weight: 57 kg

DRUGS (10)
  1. AVASTIN [Suspect]
     Indication: COLON CANCER
     Route: 041
     Dates: start: 20120810, end: 20130605
  2. XELODA [Suspect]
     Indication: COLON CANCER
     Route: 048
     Dates: start: 20120810, end: 20130619
  3. ELPLAT [Suspect]
     Indication: COLON CANCER
     Route: 041
     Dates: start: 20120810, end: 20130605
  4. KAKKON-TO [Suspect]
     Indication: NASOPHARYNGITIS
     Route: 048
     Dates: start: 20130605, end: 20130618
  5. CEFDINIR [Suspect]
     Indication: TONSILLITIS
     Route: 048
     Dates: start: 20130608, end: 20130612
  6. CRESTOR [Concomitant]
     Dosage: DOSAGE IS UNCERTAIN.
     Route: 048
  7. AMLODIPINE [Concomitant]
     Dosage: DOSAGE IS UNCERTAIN.
     Route: 048
  8. MAGMITT [Concomitant]
     Dosage: DOSAGE IS UNCERTAIN.
     Route: 048
  9. LANTUS [Concomitant]
     Dosage: DOSAGE IS UNCERTAIN.
     Route: 058
  10. APIDRA [Concomitant]
     Dosage: DOSAGE IS UNCERTAIN.
     Route: 058

REACTIONS (1)
  - Interstitial lung disease [Fatal]
